FAERS Safety Report 8376420-X (Version None)
Quarter: 2012Q2

REPORT INFORMATION
  Report Type: 
  Country: None (occurrence: None)
  Receive Date: 20120522
  Receipt Date: 20120511
  Transmission Date: 20120825
  Serious: Yes (Hospitalization, Other)
  Sender: FDA-Public Use
  Company Number: PHHY2012BR041092

PATIENT
  Sex: Male
  Weight: 70 kg

DRUGS (1)
  1. EXFORGE [Suspect]
     Indication: HYPERTENSION
     Dosage: 1 DF (320/10 MG), DAILY
     Route: 048

REACTIONS (8)
  - EMPHYSEMA [None]
  - HYPERGLYCAEMIA [None]
  - VENOUS OCCLUSION [None]
  - PNEUMONIA [None]
  - WEIGHT DECREASED [None]
  - PAIN [None]
  - CARDIAC ARREST [None]
  - BLOOD PRESSURE ABNORMAL [None]
